FAERS Safety Report 5824095-3 (Version None)
Quarter: 2008Q3

REPORT INFORMATION
  Report Type: 
  Country: None (occurrence: None)
  Receive Date: 20080728
  Receipt Date: 20080715
  Transmission Date: 20090109
  Serious: Yes (Other)
  Sender: FDA-Public Use
  Company Number: PHHY2008JP07368

PATIENT
  Sex: Male
  Weight: 64 kg

DRUGS (9)
  1. ZOMETA [Suspect]
     Indication: MULTIPLE MYELOMA
     Dosage: 4 MG, QMO
     Route: 042
     Dates: start: 20070517, end: 20080410
  2. ZOMETA [Suspect]
     Indication: BONE LESION
  3. THALIDOMIDE [Concomitant]
     Indication: MULTIPLE MYELOMA
  4. ALKERAN [Concomitant]
     Dosage: 6 MG, UNK
     Route: 048
     Dates: start: 20070308
  5. MUCOSTA [Concomitant]
     Dosage: 100 MG, UNK
     Route: 048
     Dates: start: 20070308
  6. TAKEPRON [Concomitant]
     Dosage: 15 MG, UNK
     Route: 048
     Dates: start: 20070308
  7. FLUCONAZOLE [Concomitant]
     Indication: CANDIDIASIS
     Dosage: 200 MG
     Route: 048
     Dates: start: 20070308
  8. ALLELOCK [Concomitant]
     Indication: DERMATITIS ALLERGIC
     Dosage: 10 MG
     Route: 048
     Dates: start: 20080110
  9. PURSENNID                               /SCH/ [Concomitant]
     Indication: CONSTIPATION
     Dosage: 12 MG
     Route: 048
     Dates: start: 20070308

REACTIONS (17)
  - BLOOD ALKALINE PHOSPHATASE INCREASED [None]
  - BLOOD CALCIUM DECREASED [None]
  - BLOOD CREATININE INCREASED [None]
  - BLOOD GLUCOSE INCREASED [None]
  - BLOOD IMMUNOGLOBULIN G INCREASED [None]
  - BLOOD POTASSIUM DECREASED [None]
  - BLOOD SODIUM INCREASED [None]
  - BONE DISORDER [None]
  - C-REACTIVE PROTEIN INCREASED [None]
  - COUGH [None]
  - NASOPHARYNGITIS [None]
  - OSTEONECROSIS [None]
  - PAIN [None]
  - PAIN IN JAW [None]
  - PLATELET COUNT DECREASED [None]
  - PURULENT DISCHARGE [None]
  - RED BLOOD CELL COUNT DECREASED [None]
